FAERS Safety Report 6646610-2 (Version None)
Quarter: 2010Q1

REPORT INFORMATION
  Report Type: 
  Country: None (occurrence: None)
  Receive Date: 20100322
  Receipt Date: 20100322
  Transmission Date: 20100710
  Serious: Yes (Hospitalization)
  Sender: FDA-Public Use
  Company Number: None

PATIENT
  Sex: Male

DRUGS (1)
  1. BETASERON .3 MG KIT BERELEX [Suspect]

REACTIONS (2)
  - INJECTION SITE VESICLES [None]
  - URINARY TRACT INFECTION [None]
